FAERS Safety Report 10152368 (Version 2)
Quarter: 2014Q2

REPORT INFORMATION
  Report Type: Spontaneous
  Country: US (occurrence: US)
  Receive Date: 20140505
  Receipt Date: 20140610
  Transmission Date: 20141212
  Serious: Yes (Death)
  Sender: FDA-Public Use
  Company Number: US-CELGENEUS-163-21880-14045660

PATIENT
  Age: 65 Year
  Sex: Male

DRUGS (12)
  1. REVLIMID [Suspect]
     Indication: PLASMA CELL MYELOMA
     Dosage: 25 MILLIGRAM
     Route: 048
     Dates: start: 20110407, end: 20111004
  2. REVLIMID [Suspect]
     Dosage: 10 MILLIGRAM
     Route: 048
     Dates: start: 201205
  3. REVLIMID [Suspect]
     Dosage: 10 MILLIGRAM
     Route: 048
     Dates: start: 20130710, end: 201312
  4. DECADRON [Concomitant]
     Indication: PLASMA CELL MYELOMA
     Route: 065
     Dates: start: 20110314, end: 201110
  5. DECADRON [Concomitant]
     Route: 065
     Dates: start: 20121015, end: 20131203
  6. DECADRON [Concomitant]
     Route: 065
     Dates: start: 201201, end: 201204
  7. KYPROLIS [Concomitant]
     Indication: PLASMA CELL MYELOMA
     Route: 065
     Dates: start: 20121015
  8. KYPROLIS [Concomitant]
     Route: 065
     Dates: end: 20131203
  9. CYTOXAN [Concomitant]
     Indication: PLASMA CELL MYELOMA
     Route: 065
     Dates: start: 20140114
  10. CYTOXAN [Concomitant]
     Route: 065
     Dates: end: 20140227
  11. ZOMETA [Concomitant]
     Indication: PLASMA CELL MYELOMA
     Dosage: 2 - 4MG
     Route: 065
     Dates: start: 20110311, end: 201402
  12. ZOMETA [Concomitant]
     Indication: HYPERCALCAEMIA

REACTIONS (2)
  - Plasma cell myeloma [Fatal]
  - Renal failure [Fatal]
